FAERS Safety Report 23482672 (Version 1)
Quarter: 2024Q1

REPORT INFORMATION
  Report Type: Spontaneous
  Country: CA (occurrence: None)
  Receive Date: 20240204
  Receipt Date: 20240204
  Transmission Date: 20240410
  Serious: Yes (Disabling)
  Sender: FDA-Public Use
  Company Number: None

PATIENT
  Age: 49 Year
  Sex: Female
  Weight: 69.75 kg

DRUGS (1)
  1. CLINDAMYCIN HYDROCHLORIDE [Suspect]
     Active Substance: CLINDAMYCIN HYDROCHLORIDE
     Indication: Skin infection
     Dosage: OTHER QUANTITY : 1 TABLET(S);?FREQUENCY : 4 TIMES A DAY;?
     Route: 048
     Dates: start: 20240111, end: 20240117

REACTIONS (10)
  - Hypersensitivity [None]
  - Blister [None]
  - Swelling of eyelid [None]
  - Swelling face [None]
  - Swelling [None]
  - Peripheral swelling [None]
  - Skin exfoliation [None]
  - Palpitations [None]
  - Skin weeping [None]
  - Insomnia [None]

NARRATIVE: CASE EVENT DATE: 20240111
